FAERS Safety Report 5635822-2 (Version None)
Quarter: 2008Q1

REPORT INFORMATION
  Report Type: 
  Country: None (occurrence: None)
  Receive Date: 20080221
  Receipt Date: 20080207
  Transmission Date: 20080703
  Serious: Yes (Hospitalization)
  Sender: FDA-Public Use
  Company Number: 2008S1002052

PATIENT
  Sex: Male

DRUGS (5)
  1. CITALOPRAM (CITALOPRAM) [Suspect]
     Indication: DEPRESSION
     Dosage: 10 MG; ORAL
     Route: 048
     Dates: end: 20080123
  2. QUININE (QUININE) [Suspect]
     Indication: MUSCLE SPASMS
     Dates: end: 20080123
  3. ASPIRIN [Concomitant]
  4. IBUPROFEN [Concomitant]
  5. OMEPRAZOLE [Concomitant]

REACTIONS (1)
  - SUPRAVENTRICULAR EXTRASYSTOLES [None]
